FAERS Safety Report 18581375 (Version 1)
Quarter: 2020Q4

REPORT INFORMATION
  Report Type: Spontaneous
  Country: US (occurrence: US)
  Receive Date: 20201204
  Receipt Date: 20201204
  Transmission Date: 20210114
  Serious: No
  Sender: FDA-Public Use
  Company Number: US-PFIZER INC-2020479124

PATIENT
  Age: 57 Year
  Sex: Female

DRUGS (6)
  1. CELEBREX [Suspect]
     Active Substance: CELECOXIB
     Dosage: UNK
  2. GABAPENTIN. [Suspect]
     Active Substance: GABAPENTIN
     Dosage: UNK
  3. PRAZOSIN HCL [Suspect]
     Active Substance: PRAZOSIN HYDROCHLORIDE
     Dosage: UNK
  4. AMITIZA [Suspect]
     Active Substance: LUBIPROSTONE
     Dosage: UNK
  5. MELATONIN [Suspect]
     Active Substance: MELATONIN
     Dosage: UNK
  6. TIZANIDINE. [Suspect]
     Active Substance: TIZANIDINE
     Dosage: UNK

REACTIONS (1)
  - Drug hypersensitivity [Unknown]
